FAERS Safety Report 19263454 (Version 3)
Quarter: 2022Q3

REPORT INFORMATION
  Report Type: Report from Study
  Country: GR (occurrence: GR)
  Receive Date: 20210517
  Receipt Date: 20220916
  Transmission Date: 20221027
  Serious: Yes (Death, Hospitalization, Other)
  Sender: FDA-Public Use
  Company Number: GR-AMRYT PHARMACEUTICALS DAC-AEGR004954

PATIENT

DRUGS (32)
  1. LOMITAPIDE MESYLATE [Suspect]
     Active Substance: LOMITAPIDE MESYLATE
     Indication: Type IIa hyperlipidaemia
     Dosage: 1 TAB, TUE-THU-SAT
     Route: 048
     Dates: start: 201411, end: 20210425
  2. LOMITAPIDE MESYLATE [Suspect]
     Active Substance: LOMITAPIDE MESYLATE
     Dosage: 20MG MON-WED-FRI-SUN AND 10 MG TUE-THUR-SAT
     Route: 048
     Dates: start: 202005, end: 20210425
  3. LOMITAPIDE MESYLATE [Suspect]
     Active Substance: LOMITAPIDE MESYLATE
     Dosage: 5 MILLIGRAM, QD
     Route: 048
     Dates: start: 20141102, end: 20141219
  4. LOMITAPIDE MESYLATE [Suspect]
     Active Substance: LOMITAPIDE MESYLATE
     Dosage: 10 MILLIGRAM, QD
     Route: 048
     Dates: start: 20141220, end: 20150419
  5. LOMITAPIDE MESYLATE [Suspect]
     Active Substance: LOMITAPIDE MESYLATE
     Dosage: 10 MILLIGRAM, QOD
     Route: 048
     Dates: start: 20150420, end: 20151019
  6. LOMITAPIDE MESYLATE [Suspect]
     Active Substance: LOMITAPIDE MESYLATE
     Dosage: 20 MILLIGRAM, QOD
     Route: 048
     Dates: start: 20150420, end: 20151019
  7. LOMITAPIDE MESYLATE [Suspect]
     Active Substance: LOMITAPIDE MESYLATE
     Dosage: 10 MILLIGRAM, QD
     Route: 048
     Dates: start: 20151020, end: 20161123
  8. LOMITAPIDE MESYLATE [Suspect]
     Active Substance: LOMITAPIDE MESYLATE
     Dosage: 20 MG ONCE A WEEK
     Route: 048
     Dates: start: 20151020, end: 20161123
  9. LOMITAPIDE MESYLATE [Suspect]
     Active Substance: LOMITAPIDE MESYLATE
     Dosage: 10 MILLIGRAM, QOD
     Route: 048
     Dates: start: 20161124
  10. LOMITAPIDE MESYLATE [Suspect]
     Active Substance: LOMITAPIDE MESYLATE
     Dosage: 20 MILLIGRAM, QOD
     Route: 048
     Dates: start: 20161124
  11. COLESEVELAM HYDROCHLORIDE [Suspect]
     Active Substance: COLESEVELAM HYDROCHLORIDE
     Indication: Product used for unknown indication
     Dosage: UNK
     Dates: end: 20201002
  12. SINTROM [Concomitant]
     Active Substance: ACENOCOUMAROL
     Indication: Product used for unknown indication
  13. RANEXA [Concomitant]
     Active Substance: RANOLAZINE
     Indication: Product used for unknown indication
  14. SOTALOL                            /00371502/ [Concomitant]
     Indication: Hypertension
     Dosage: 0.25 DF, QD
  15. SOTALOL                            /00371502/ [Concomitant]
     Indication: Coronary artery disease
     Dosage: 40 MILLIGRAM, QD
     Route: 048
     Dates: start: 2004
  16. PANTOPRAZOLE [Concomitant]
     Active Substance: PANTOPRAZOLE
     Indication: Abdominal discomfort
     Dosage: 1 DF, EVERY MORNING
  17. EZETIMIBE\ROSUVASTATIN ZINC [Concomitant]
     Active Substance: EZETIMIBE\ROSUVASTATIN ZINC
     Indication: Product used for unknown indication
  18. ASPIRIN\CLOPIDOGREL [Concomitant]
     Active Substance: ASPIRIN\CLOPIDOGREL
     Indication: Product used for unknown indication
  19. LASIX [Concomitant]
     Active Substance: FUROSEMIDE
     Indication: Product used for unknown indication
     Dosage: UNK, PRN
  20. TOCOPHEROL [Concomitant]
     Active Substance: TOCOPHEROL
     Indication: Supplementation therapy
     Dosage: 268 MILLIGRAM, QD
     Route: 048
     Dates: start: 201411
  21. OMEGA 3                            /01333901/ [Concomitant]
     Indication: Supplementation therapy
  22. ENTRESTO [Concomitant]
     Active Substance: SACUBITRIL\VALSARTAN
     Indication: Product used for unknown indication
     Dosage: 49+51 MG AM AND 24+26 PM TABLET BID
     Route: 048
  23. ACENOCOUMAROL [Concomitant]
     Active Substance: ACENOCOUMAROL
     Indication: Anticoagulant therapy
     Dosage: 4 MILLIGRAM, PRN
     Route: 048
     Dates: start: 1992
  24. ASPIRIN [Concomitant]
     Active Substance: ASPIRIN
     Indication: Antiplatelet therapy
     Dosage: 100 MILLIGRAM, QD
     Route: 048
     Dates: start: 2000
  25. ATORVASTATIN [Concomitant]
     Active Substance: ATORVASTATIN
     Indication: Hypercholesterolaemia
     Dosage: 40 MILLIGRAM, QD
     Route: 048
     Dates: start: 2012
  26. CLOPIDOGREL [Concomitant]
     Active Substance: CLOPIDOGREL BISULFATE
     Indication: Antiplatelet therapy
     Dosage: 75 MILLIGRAM, QD
     Route: 048
     Dates: start: 2004
  27. COLESEVELAM [Concomitant]
     Active Substance: COLESEVELAM
     Indication: Hypercholesterolaemia
     Dosage: 625 MILLIGRAM, QD
     Route: 048
     Dates: start: 2012
  28. EZETIMIBE [Concomitant]
     Active Substance: EZETIMIBE
     Indication: Hypercholesterolaemia
     Dosage: 10 MILLIGRAM, QD
     Route: 048
     Dates: start: 2012
  29. ISOSORBIDE [Concomitant]
     Active Substance: ISOSORBIDE
     Indication: Hypertension
     Dosage: 80 MILLIGRAM, BID
     Route: 048
     Dates: start: 2010
  30. FISH OIL [Concomitant]
     Active Substance: FISH OIL
     Indication: Supplementation therapy
     Dosage: UNK, QD
     Route: 048
     Dates: start: 201411
  31. RANITIDINE [Concomitant]
     Active Substance: RANITIDINE
     Indication: Antiallergic therapy
     Dosage: 150 MILLIGRAM, QD
     Route: 048
     Dates: start: 2013
  32. VERAPAMIL [Concomitant]
     Active Substance: VERAPAMIL HYDROCHLORIDE
     Indication: Cardiac disorder
     Dosage: 80 MILLIGRAM, QD
     Route: 048
     Dates: start: 2010

REACTIONS (15)
  - Cardiac failure [Fatal]
  - Gastrointestinal haemorrhage [Fatal]
  - Myocardial infarction [Fatal]
  - Nosocomial infection [Unknown]
  - Haematochezia [Unknown]
  - Haematocrit decreased [Recovering/Resolving]
  - Serum ferritin decreased [Unknown]
  - Blood iron decreased [Unknown]
  - Asthenia [Recovered/Resolved]
  - Blood triglycerides decreased [Recovering/Resolving]
  - Haemoglobin decreased [Unknown]
  - Low density lipoprotein increased [Unknown]
  - Aspartate aminotransferase increased [Unknown]
  - Alanine aminotransferase increased [Unknown]
  - Inappropriate schedule of product administration [Unknown]

NARRATIVE: CASE EVENT DATE: 20141101
